FAERS Safety Report 4290017-2 (Version None)
Quarter: 2004Q1

REPORT INFORMATION
  Report Type: 
  Country: None (occurrence: None)
  Receive Date: 20040209
  Receipt Date: 20040122
  Transmission Date: 20041129
  Serious: Yes (Other)
  Sender: FDA-Public Use
  Company Number: 203169

PATIENT
  Age: 51 Year
  Sex: Male

DRUGS (1)
  1. NUTROPIN [Suspect]
     Indication: GROWTH HORMONE DEFICIENCY
     Dosage: 1.1 MG, QD, SUBCUTANEOUS
     Route: 058
     Dates: start: 19981125, end: 20000711

REACTIONS (1)
  - RENAL NEOPLASM [None]
